FAERS Safety Report 8308041-9 (Version None)
Quarter: 2012Q2

REPORT INFORMATION
  Report Type: 
  Country: None (occurrence: None)
  Receive Date: 20120420
  Receipt Date: 20120410
  Transmission Date: 20120825
  Serious: Yes (Hospitalization)
  Sender: FDA-Public Use
  Company Number: 2012000081

PATIENT
  Age: 92 Year
  Sex: Female

DRUGS (3)
  1. LERCANIDIPINE [Concomitant]
  2. PAROXETINE HYDROCHLORIDE [Suspect]
     Indication: DEPRESSION
     Dosage: UNK, ORAL
     Route: 048
     Dates: end: 20111009
  3. ACEON [Suspect]
     Indication: HYPERTENSION
     Dosage: UNK, ORAL
     Route: 048
     Dates: end: 20111009

REACTIONS (5)
  - URINARY TRACT INFECTION BACTERIAL [None]
  - HYPONATRAEMIA [None]
  - OEDEMA PERIPHERAL [None]
  - FALL [None]
  - HYPOALBUMINAEMIA [None]
